FAERS Safety Report 5134982-X (Version None)
Quarter: 2006Q4

REPORT INFORMATION
  Report Type: 
  Country: None (occurrence: None)
  Receive Date: 20061025
  Receipt Date: 20061017
  Transmission Date: 20070319
  Serious: Yes (Death)
  Sender: FDA-Public Use
  Company Number: CA-ABBOTT-06P-028-0347398-00

PATIENT
  Sex: Female
  Weight: 51.302 kg

DRUGS (2)
  1. MAVIK [Suspect]
     Indication: HYPERTENSION
     Route: 048
     Dates: start: 20060824, end: 20060913
  2. IBUPROFEN [Concomitant]
     Indication: OSTEOARTHRITIS
     Route: 048
     Dates: end: 20060913

REACTIONS (1)
  - MYOCARDIAL INFARCTION [None]
